FAERS Safety Report 13669321 (Version 1)
Quarter: 2020Q3

REPORT INFORMATION
  Report Type: Spontaneous
  Country: AU (occurrence: AU)
  Receive Date: 20170620
  Receipt Date: 20170620
  Transmission Date: 20201104
  Serious: Yes (Death, Hospitalization, Other)
  Sender: FDA-Public Use
  Company Number: PHHY2017AU090286

PATIENT
  Age: 39 Year
  Sex: Female

DRUGS (3)
  1. ZYKADIA [Suspect]
     Active Substance: CERITINIB
     Indication: NON-SMALL CELL LUNG CANCER
     Dosage: 750 MG, QD
     Route: 048
     Dates: start: 20140304, end: 201412
  2. ZYKADIA [Suspect]
     Active Substance: CERITINIB
     Dosage: 600 MG, QD
     Route: 048
     Dates: end: 20150619
  3. ALECTINIB. [Suspect]
     Active Substance: ALECTINIB
     Indication: PRODUCT USED FOR UNKNOWN INDICATION
     Route: 065

REACTIONS (13)
  - Malignant neoplasm progression [Unknown]
  - Vomiting [Unknown]
  - Cough [Recovered/Resolved]
  - Death [Fatal]
  - Pericardial effusion [Recovered/Resolved]
  - Gastrointestinal toxicity [Unknown]
  - Non-small cell lung cancer [Unknown]
  - General physical health deterioration [Unknown]
  - Abdominal pain [Unknown]
  - Diarrhoea [Unknown]
  - Dyspnoea [Unknown]
  - Metastases to central nervous system [Unknown]
  - Nausea [Unknown]

NARRATIVE: CASE EVENT DATE: 201409
